FAERS Safety Report 24308789 (Version 2)
Quarter: 2024Q4

REPORT INFORMATION
  Report Type: Report from Study
  Country: CO (occurrence: CO)
  Receive Date: 20240911
  Receipt Date: 20241024
  Transmission Date: 20250114
  Serious: Yes (Death, Hospitalization)
  Sender: ABBVIE
  Company Number: CO-JNJFOC-20240916325

PATIENT
  Sex: Male
  Weight: 54 kg

DRUGS (2)
  1. IMBRUVICA [Suspect]
     Active Substance: IBRUTINIB
     Indication: Chronic lymphocytic leukaemia
     Route: 048
     Dates: start: 20240823, end: 202410
  2. IMBRUVICA [Suspect]
     Active Substance: IBRUTINIB
     Indication: Chronic lymphocytic leukaemia
     Dosage: LAST DRUG APPLICATION: OCT-2024
     Route: 048
     Dates: start: 20241001

REACTIONS (7)
  - Death [Fatal]
  - Haemoglobin decreased [Fatal]
  - Underweight [Unknown]
  - Condition aggravated [Fatal]
  - Pyrexia [Fatal]
  - Dyspnoea [Fatal]
  - Diarrhoea [Fatal]

NARRATIVE: CASE EVENT DATE: 20240101
